FAERS Safety Report 6552382-2 (Version None)
Quarter: 2010Q1

REPORT INFORMATION
  Report Type: 
  Country: None (occurrence: None)
  Receive Date: 20100126
  Receipt Date: 20100118
  Transmission Date: 20100710
  Serious: Yes (Other)
  Sender: FDA-Public Use
  Company Number: AU-PFIZER INC-2009304015

PATIENT
  Age: 55 Year
  Sex: Male

DRUGS (1)
  1. LIPITOR [Suspect]

REACTIONS (5)
  - ATRIAL FIBRILLATION [None]
  - CARDIAC FLUTTER [None]
  - CHEST PAIN [None]
  - MALAISE [None]
  - PALLOR [None]
